FAERS Safety Report 9853860 (Version 1)
Quarter: 2014Q1

REPORT INFORMATION
  Report Type: Spontaneous
  Country: US (occurrence: US)
  Receive Date: 20140129
  Receipt Date: 20140129
  Transmission Date: 20141002
  Serious: No
  Sender: FDA-Public Use
  Company Number: US-TEVA-459268USA

PATIENT
  Age: 36 Year
  Sex: Female
  Weight: 92.16 kg

DRUGS (5)
  1. PARAGARD 380A [Suspect]
     Indication: CONTRACEPTION
     Route: 015
     Dates: start: 2011
  2. SAVELLA [Concomitant]
     Indication: FIBROMYALGIA
  3. DELIRICA [Concomitant]
     Indication: FIBROMYALGIA
  4. MAXALT [Concomitant]
     Indication: MIGRAINE
  5. XANAX [Concomitant]
     Indication: ANXIETY

REACTIONS (1)
  - Fungal infection [Not Recovered/Not Resolved]
